FAERS Safety Report 8976609 (Version 1)
Quarter: 2012Q4

REPORT INFORMATION
  Report Type: 
  Country: IT (occurrence: IT)
  Receive Date: 20121220
  Receipt Date: 20121220
  Transmission Date: 20130627
  Serious: Yes (Hospitalization)
  Sender: FDA-Public Use
  Company Number: IT-PFIZER INC-2012319439

PATIENT
  Age: 80 Year
  Sex: Female

DRUGS (3)
  1. MEDROL [Suspect]
     Indication: RACHIALGIA
     Dosage: 4 mg, 1x/day
     Route: 048
     Dates: start: 20120820, end: 20121025
  2. BRUFEN [Suspect]
     Indication: RACHIALGIA
     Dosage: 400 mg, 1x/day
     Route: 048
     Dates: start: 20121026, end: 20121027
  3. COUMADIN [Suspect]
     Indication: CHRONIC ATRIAL FIBRILLATION
     Dosage: 5 mg, 1x/day
     Route: 048
     Dates: start: 20090101, end: 20121028

REACTIONS (1)
  - Rectal haemorrhage [Unknown]
